FAERS Safety Report 5271583-7 (Version None)
Quarter: 2007Q1

REPORT INFORMATION
  Report Type: 
  Country: None (occurrence: None)
  Receive Date: 20070321
  Receipt Date: 20070309
  Transmission Date: 20070707
  Serious: Yes (Other)
  Sender: FDA-Public Use
  Company Number: PE-PFIZER INC-2007018326

PATIENT
  Age: 88 Year
  Sex: Female

DRUGS (1)
  1. SULPERAZON [Suspect]
     Indication: PNEUMONIA
     Route: 042

REACTIONS (1)
  - INTERNATIONAL NORMALISED RATIO INCREASED [None]
